FAERS Safety Report 7747386-8 (Version None)
Quarter: 2011Q3

REPORT INFORMATION
  Report Type: 
  Country: None (occurrence: None)
  Receive Date: 20110913
  Receipt Date: 20110912
  Transmission Date: 20111222
  Serious: Yes (Hospitalization)
  Sender: FDA-Public Use
  Company Number: US-GLAXOSMITHKLINE-A0944172A

PATIENT
  Age: 16 Year
  Sex: Male

DRUGS (1)
  1. ADVAIR DISKUS 100/50 [Suspect]
     Indication: CHRONIC OBSTRUCTIVE PULMONARY DISEASE
     Dosage: 2PUFF TWICE PER DAY
     Route: 055
     Dates: start: 20050101, end: 20110815

REACTIONS (5)
  - TREMOR [None]
  - HYPERSENSITIVITY [None]
  - THROAT IRRITATION [None]
  - CANDIDIASIS [None]
  - DYSPNOEA [None]
